FAERS Safety Report 17152805 (Version 1)
Quarter: 2019Q4

REPORT INFORMATION
  Report Type: Spontaneous
  Country: US (occurrence: US)
  Receive Date: 20191213
  Receipt Date: 20191213
  Transmission Date: 20200122
  Serious: No
  Sender: FDA-Public Use
  Company Number: US-NOVOPROD-693729

PATIENT
  Sex: Female

DRUGS (1)
  1. LEVEMIR [Suspect]
     Active Substance: INSULIN DETEMIR
     Indication: TYPE 2 DIABETES MELLITUS
     Dosage: 106 IU, QD (52 UNITS IN THE MORNING AND 54 UNITS IN THE EVENING)
     Route: 058
     Dates: start: 2006

REACTIONS (2)
  - Fatigue [Unknown]
  - Neuropathy peripheral [Unknown]
